FAERS Safety Report 5019310-2 (Version None)
Quarter: 2006Q2

REPORT INFORMATION
  Report Type: 
  Country: None (occurrence: None)
  Receive Date: 20060606
  Receipt Date: 20060526
  Transmission Date: 20061013
  Serious: Yes (Other)
  Sender: FDA-Public Use
  Company Number: US-JNJFOC-20050904286

PATIENT
  Sex: Female
  Weight: 59.88 kg

DRUGS (37)
  1. REMICADE [Suspect]
     Route: 042
  2. REMICADE [Suspect]
     Indication: CROHN'S DISEASE
     Route: 042
  3. IMURAN [Concomitant]
  4. PENTASA [Concomitant]
  5. PREVACID [Concomitant]
  6. VITAMIN B INJECTION [Concomitant]
     Dosage: 1 CC/MONTH
     Route: 050
  7. PREDNISONE [Concomitant]
  8. COMBIVENT [Concomitant]
     Route: 055
  9. COMBIVENT [Concomitant]
     Indication: ASTHMA
     Dosage: 2 PUFFS AS NEEDED
     Route: 055
  10. ALBUTEROL [Concomitant]
     Indication: ASTHMA
     Dosage: 2 PUFFS AS NEEDED
     Route: 055
  11. REGLAN [Concomitant]
     Indication: NAUSEA
     Dosage: BEFORE MEALS, AT NIGHT
     Route: 048
  12. NASONEX [Concomitant]
     Indication: MULTIPLE ALLERGIES
     Dosage: AS NEEDED
  13. PAMINE FORTE [Concomitant]
     Indication: PAIN
     Dosage: AS NEEDED
  14. MULTI-VITAMIN [Concomitant]
  15. MULTI-VITAMIN [Concomitant]
  16. MULTI-VITAMIN [Concomitant]
  17. MULTI-VITAMIN [Concomitant]
  18. MULTI-VITAMIN [Concomitant]
  19. MULTI-VITAMIN [Concomitant]
  20. MULTI-VITAMIN [Concomitant]
  21. MULTI-VITAMIN [Concomitant]
  22. ZYRTEC [Concomitant]
     Indication: SEASONAL ALLERGY
     Route: 048
  23. POTASSIUM [Concomitant]
     Indication: HYPOKALAEMIA
     Route: 048
  24. 5-ASA [Concomitant]
     Indication: CROHN'S DISEASE
     Route: 048
  25. NEXIUM [Concomitant]
     Indication: REFLUX OESOPHAGITIS
     Route: 048
  26. PRENATAL VITAMINS [Concomitant]
     Route: 048
  27. PRENATAL VITAMINS [Concomitant]
     Route: 048
  28. PRENATAL VITAMINS [Concomitant]
     Route: 048
  29. PRENATAL VITAMINS [Concomitant]
     Route: 048
  30. PRENATAL VITAMINS [Concomitant]
     Route: 048
  31. PRENATAL VITAMINS [Concomitant]
     Route: 048
  32. PRENATAL VITAMINS [Concomitant]
     Route: 048
  33. PRENATAL VITAMINS [Concomitant]
     Indication: VITAMIN SUPPLEMENTATION
     Route: 048
  34. LAMISIL [Concomitant]
     Indication: CERVIX OPERATION
     Route: 048
  35. PHENERGAN HCL [Concomitant]
     Indication: NAUSEA
     Dosage: Q 6 HRS PRN.
     Route: 048
  36. DESFERAL [Concomitant]
     Indication: IRON DEFICIENCY
     Dosage: ONE DOSE
     Route: 030
  37. VITAMIN B-12 [Concomitant]
     Indication: PERNICIOUS ANAEMIA
     Route: 030

REACTIONS (7)
  - ASTHMA [None]
  - CERVIX OPERATION [None]
  - CROHN'S DISEASE [None]
  - DRUG EXPOSURE DURING PREGNANCY [None]
  - HAEMOGLOBIN DECREASED [None]
  - IRON DEFICIENCY [None]
  - NAUSEA [None]
